FAERS Safety Report 8554185-6 (Version None)
Quarter: 2012Q3

REPORT INFORMATION
  Report Type: 
  Country: None (occurrence: None)
  Receive Date: 20120731
  Receipt Date: 20120724
  Transmission Date: 20120928
  Serious: Yes (Other)
  Sender: FDA-Public Use
  Company Number: TR-ELI_LILLY_AND_COMPANY-TR201206007314

PATIENT
  Age: 34 Year
  Sex: Male

DRUGS (1)
  1. CIALIS [Suspect]
     Dosage: 20 MG, OTHER

REACTIONS (5)
  - VISION BLURRED [None]
  - EYE SWELLING [None]
  - SWELLING FACE [None]
  - OCULAR HYPERAEMIA [None]
  - ECCHYMOSIS [None]
